FAERS Safety Report 9800027 (Version 2)
Quarter: 2014Q1

REPORT INFORMATION
  Report Type: Spontaneous
  Country: US (occurrence: US)
  Receive Date: 20140106
  Receipt Date: 20140106
  Transmission Date: 20141002
  Serious: No
  Sender: FDA-Public Use
  Company Number: US-GILEAD-2010-0030849

PATIENT
  Sex: Female
  Weight: 97.52 kg

DRUGS (16)
  1. LETAIRIS [Suspect]
     Indication: PULMONARY ARTERIAL HYPERTENSION
     Route: 048
     Dates: start: 20100719
  2. SIMVASTATIN [Concomitant]
  3. COZAAR [Concomitant]
  4. HEPARIN [Concomitant]
  5. HYDRALAZINE [Concomitant]
  6. ISOSORBIDE [Concomitant]
  7. ASPIRIN [Concomitant]
  8. ATENOLOL [Concomitant]
  9. FUROSEMIDE [Concomitant]
  10. SLO-NIACIN [Concomitant]
  11. HUMULIN L [Concomitant]
  12. LEVOTHYROXINE [Concomitant]
  13. VENOFER [Concomitant]
  14. PRILOSEC [Concomitant]
  15. FLEXERIL [Concomitant]
  16. NEPHRO-VITE [Concomitant]

REACTIONS (2)
  - Heart rate increased [Unknown]
  - Palpitations [Unknown]
